FAERS Safety Report 7609437-0 (Version None)
Quarter: 2011Q3

REPORT INFORMATION
  Report Type: 
  Country: None (occurrence: None)
  Receive Date: 20110714
  Receipt Date: 20110708
  Transmission Date: 20111222
  Serious: Yes (Hospitalization)
  Sender: FDA-Public Use
  Company Number: FR-B.I. PHARMACEUTICALS,INC./RIDGEFIELD-2011-DE-00685DE

PATIENT
  Sex: Male

DRUGS (10)
  1. RAMIPRIL [Concomitant]
  2. STATINE [Concomitant]
  3. OXEOL [Concomitant]
  4. FUROSEMIDE [Concomitant]
  5. SERITIDE [Concomitant]
  6. SPIRIVA [Concomitant]
  7. DABIGATRAN [Suspect]
     Indication: CEREBROVASCULAR ACCIDENT PROPHYLAXIS
     Route: 048
     Dates: start: 20061023
  8. ACETAMINOPHEN [Concomitant]
  9. DIGOXIN [Concomitant]
  10. DABIGATRAN [Suspect]
     Indication: ATRIAL FIBRILLATION

REACTIONS (1)
  - INFECTIOUS PERITONITIS [None]
